FAERS Safety Report 14914785 (Version 1)
Quarter: 2018Q2

REPORT INFORMATION
  Report Type: Spontaneous
  Country: US (occurrence: US)
  Receive Date: 20180501
  Receipt Date: 20180501
  Transmission Date: 20180711
  Serious: No
  Sender: FDA-Public Use
  Company Number: None

PATIENT
  Age: 65 Year
  Sex: Female
  Weight: 68.04 kg

DRUGS (1)
  1. IUD NOS [Suspect]
     Active Substance: COPPER OR LEVONORGESTREL
     Indication: CONTRACEPTION
     Dates: start: 198109, end: 198110

REACTIONS (5)
  - Scar [None]
  - Eczema [None]
  - Foreign body in reproductive tract [None]
  - Complication of device removal [None]
  - Device issue [None]

NARRATIVE: CASE EVENT DATE: 19710909
